FAERS Safety Report 6938732-3 (Version None)
Quarter: 2010Q3

REPORT INFORMATION
  Report Type: 
  Country: None (occurrence: None)
  Receive Date: 20100824
  Receipt Date: 20100819
  Transmission Date: 20110219
  Serious: Yes (Death, Other)
  Sender: FDA-Public Use
  Company Number: PHHY2010AR55001

PATIENT
  Sex: Female

DRUGS (2)
  1. DIOVAN [Suspect]
     Dosage: 80 MG ALTERNATING, EVERY DAY IN THE MORNING
  2. DIOVAN HCT [Suspect]
     Dosage: 80/12.5 MG ALTERNATING, EVERY DAY IN THE MORNING

REACTIONS (6)
  - APHAGIA [None]
  - CEREBROVASCULAR ACCIDENT [None]
  - COMA [None]
  - PNEUMONIA [None]
  - REGURGITATION [None]
  - SPEECH DISORDER [None]
